FAERS Safety Report 8288953-5 (Version None)
Quarter: 2012Q2

REPORT INFORMATION
  Report Type: 
  Country: None (occurrence: None)
  Receive Date: 20120417
  Receipt Date: 20120410
  Transmission Date: 20120825
  Serious: Yes (Hospitalization)
  Sender: FDA-Public Use
  Company Number: US-BAYER-2011-108092

PATIENT
  Age: 38 Year
  Sex: Female
  Weight: 58.957 kg

DRUGS (3)
  1. NORGESTIMATE AND ETHINYL ESTRADIOL [Concomitant]
     Indication: CONTRACEPTION
     Dosage: UNK
     Dates: start: 20080501, end: 20091001
  2. YASMIN [Suspect]
     Indication: CONTRACEPTION
     Dosage: UNK
     Dates: start: 20021001, end: 20080401
  3. IBUPROFEN [Concomitant]
     Dosage: UNK UNK, PRN

REACTIONS (5)
  - PAIN IN EXTREMITY [None]
  - OEDEMA PERIPHERAL [None]
  - PAIN [None]
  - QUALITY OF LIFE DECREASED [None]
  - DEEP VEIN THROMBOSIS [None]
